FAERS Safety Report 24324069 (Version 1)
Quarter: 2024Q3

REPORT INFORMATION
  Report Type: Spontaneous
  Country: US (occurrence: None)
  Receive Date: 20240915
  Receipt Date: 20240915
  Transmission Date: 20241017
  Serious: Yes (Other)
  Sender: Public
  Company Number: None

PATIENT
  Age: 38 Year
  Sex: Female
  Weight: 93.6 kg

DRUGS (1)
  1. OZEMPIC [Suspect]
     Active Substance: SEMAGLUTIDE
     Indication: Diabetes mellitus
     Dates: start: 20240705, end: 20240712

REACTIONS (4)
  - Panic attack [None]
  - Anxiety [None]
  - Palpitations [None]
  - Impaired driving ability [None]

NARRATIVE: CASE EVENT DATE: 20240717
